FAERS Safety Report 18517156 (Version 1)
Quarter: 2020Q4

REPORT INFORMATION
  Report Type: Spontaneous
  Country: US (occurrence: US)
  Receive Date: 20201118
  Receipt Date: 20201118
  Transmission Date: 20210114
  Serious: Yes (Death)
  Sender: FDA-Public Use
  Company Number: None

PATIENT
  Age: 95 Year
  Sex: Male
  Weight: 84.1 kg

DRUGS (11)
  1. REMDESIVIR. [Suspect]
     Active Substance: REMDESIVIR
     Indication: COVID-19 PNEUMONIA
     Route: 042
     Dates: start: 20201029, end: 20201102
  2. ASCORBIC ACID 1000MG PO Q12HR [Concomitant]
     Dates: start: 20201024, end: 20201028
  3. AZTREONAM 1GM IV Q8HR [Concomitant]
     Dates: start: 20201101, end: 20201108
  4. PANTOPRAZOLE 40MG PO DAILY [Concomitant]
     Dates: start: 20201024, end: 20201111
  5. AZITHROMYCIN 500MG PO DAILY [Concomitant]
     Dates: start: 20201023, end: 20201028
  6. CEFTRIAXONE 1GM IV DAILY [Concomitant]
     Dates: start: 20201023, end: 20201028
  7. DEXAMETHASONE 6MG IV Q12HR, Q6HR [Concomitant]
     Dates: start: 20201023, end: 20201102
  8. DOXYCYCLINE 100MG IV Q12HR [Concomitant]
     Dates: start: 20201030, end: 20201101
  9. CEFEPIME 1GM IV Q6HR [Concomitant]
     Dates: start: 20201110, end: 20201111
  10. CLINIMIX 27.5GM Q20H [Concomitant]
     Dates: start: 20201104, end: 20201111
  11. ZINC SULFATE 220MG PO BID [Concomitant]
     Dates: start: 20201024, end: 20201109

REACTIONS (24)
  - Neutrophil percentage increased [None]
  - Neutrophil count increased [None]
  - Eosinophil count decreased [None]
  - Azotaemia [None]
  - Blood bilirubin increased [None]
  - General physical health deterioration [None]
  - Hypotension [None]
  - Atrial fibrillation [None]
  - Hyponatraemia [None]
  - Oxygen consumption increased [None]
  - Monocyte percentage decreased [None]
  - Eosinophil percentage decreased [None]
  - Respiratory rate decreased [None]
  - White blood cell count abnormal [None]
  - Lymphocyte count decreased [None]
  - Blood creatinine decreased [None]
  - Red blood cell count decreased [None]
  - Red cell distribution width decreased [None]
  - Monocyte count decreased [None]
  - Blood albumin decreased [None]
  - Haematocrit decreased [None]
  - Blood calcium decreased [None]
  - Immature granulocyte percentage increased [None]
  - Lymphocyte percentage abnormal [None]

NARRATIVE: CASE EVENT DATE: 20201111
